FAERS Safety Report 9150154 (Version 3)
Quarter: 2013Q4

REPORT INFORMATION
  Report Type: Spontaneous
  Country: JP (occurrence: JP)
  Receive Date: 20130308
  Receipt Date: 20131003
  Transmission Date: 20140711
  Serious: Yes (Hospitalization, Other)
  Sender: FDA-Public Use
  Company Number: PHHY2013JP020673

PATIENT
  Sex: Female
  Weight: 50 kg

DRUGS (3)
  1. IMATINIB [Suspect]
     Indication: CHRONIC MYELOID LEUKAEMIA
     Dosage: 100 MG, DAILY
     Route: 048
     Dates: start: 200910
  2. IMATINIB [Suspect]
     Dosage: 300 MG, DAILY
     Route: 048
     Dates: start: 201005
  3. IMATINIB [Suspect]
     Dosage: 600 MG, DAILY
     Dates: start: 201210, end: 20121124

REACTIONS (15)
  - Pancytopenia [Unknown]
  - Platelet count decreased [Unknown]
  - Renal impairment [Unknown]
  - Blood lactate dehydrogenase increased [Unknown]
  - Pyrexia [Not Recovered/Not Resolved]
  - Malaise [Not Recovered/Not Resolved]
  - Blood pressure increased [Unknown]
  - White blood cell count decreased [Unknown]
  - Normochromic normocytic anaemia [Unknown]
  - Blast crisis in myelogenous leukaemia [Unknown]
  - Nausea [Not Recovered/Not Resolved]
  - Full blood count decreased [Not Recovered/Not Resolved]
  - Renal disorder [Unknown]
  - Drug intolerance [Unknown]
  - Infection [Unknown]
